FAERS Safety Report 5598071-2 (Version None)
Quarter: 2008Q1

REPORT INFORMATION
  Report Type: 
  Country: None (occurrence: None)
  Receive Date: 20080122
  Receipt Date: 20080109
  Transmission Date: 20080703
  Serious: Yes (Hospitalization)
  Sender: FDA-Public Use
  Company Number: US-ELI_LILLY_AND_COMPANY-US200710002646

PATIENT
  Sex: Female

DRUGS (6)
  1. FORTEO [Suspect]
     Indication: OSTEOPOROSIS
     Dosage: UNK, UNK
     Dates: start: 20070501, end: 20070922
  2. MEDROL [Concomitant]
  3. ARAVA [Concomitant]
  4. CELEBREX [Concomitant]
  5. PREVACID [Concomitant]
  6. DURAGESIC-100 [Concomitant]

REACTIONS (3)
  - CHEST PAIN [None]
  - HYPERTENSIVE CRISIS [None]
  - URINARY TRACT INFECTION [None]
